FAERS Safety Report 7098754-1 (Version None)
Quarter: 2010Q4

REPORT INFORMATION
  Report Type: 
  Country: None (occurrence: None)
  Receive Date: 20101112
  Receipt Date: 20101102
  Transmission Date: 20110411
  Serious: Yes (Hospitalization)
  Sender: FDA-Public Use
  Company Number: US-JNJCH-2010025442

PATIENT
  Age: 53 Year
  Sex: Male
  Weight: 93.4 kg

DRUGS (1)
  1. ROGAINE [Suspect]
     Indication: ALOPECIA
     Dosage: TEXT:ONE DROPPERFUL ONCE DAILY
     Route: 061

REACTIONS (3)
  - DIZZINESS [None]
  - TACHYCARDIA [None]
  - UNDERDOSE [None]
